FAERS Safety Report 10286332 (Version 1)
Quarter: 2014Q3

REPORT INFORMATION
  Report Type: Spontaneous
  Country: US (occurrence: None)
  Receive Date: 20140703
  Receipt Date: 20140703
  Transmission Date: 20150326
  Serious: Yes (Hospitalization)
  Sender: FDA-Public Use
  Company Number: AUR-APL-2014-07020

PATIENT
  Age: 65 Year
  Sex: Male

DRUGS (7)
  1. WARFARIN (WARFARIN) [Suspect]
     Active Substance: WARFARIN
     Indication: DEEP VEIN THROMBOSIS
  2. LANSOPRAZOLE (LANSOPRAZOLE) [Concomitant]
     Active Substance: LANSOPRAZOLE
  3. CISPLATIN (CISPLATIN) [Suspect]
     Active Substance: CISPLATIN
     Indication: OROPHARYNGEAL SQUAMOUS CELL CARCINOMA
     Dosage: SINGLE DOSE
  4. TIOTROPIUM BROMIDE (TIOTROPIUM BROMIDE) [Concomitant]
     Active Substance: TIOTROPIUM BROMIDE
  5. FLUTICASONE [Concomitant]
     Active Substance: FLUTICASONE\FLUTICASONE PROPIONATE
  6. ONDANSETRON. [Suspect]
     Active Substance: ONDANSETRON
     Indication: PRODUCT USED FOR UNKNOWN INDICATION
  7. SALMETEROL [Concomitant]
     Active Substance: SALMETEROL

REACTIONS (3)
  - Epistaxis [None]
  - International normalised ratio increased [None]
  - Drug interaction [None]
